FAERS Safety Report 10229864 (Version 2)
Quarter: 2014Q3

REPORT INFORMATION
  Report Type: Spontaneous
  Country: US (occurrence: None)
  Receive Date: 20140609
  Receipt Date: 20140730
  Transmission Date: 20150326
  Serious: Yes (Hospitalization, Other)
  Sender: FDA-Public Use
  Company Number: 2014-US-006849

PATIENT
  Age: 56 Year
  Sex: Male
  Weight: 87.5 kg

DRUGS (9)
  1. XYREM [Suspect]
     Active Substance: SODIUM OXYBATE
     Indication: CATAPLEXY
     Route: 048
     Dates: start: 200612, end: 2007
  2. ASPIRIN (ACETYLSALICYLIC ACID) [Concomitant]
     Active Substance: ASPIRIN
  3. AMBIEN [Concomitant]
     Active Substance: ZOLPIDEM TARTRATE
  4. XYREM [Suspect]
     Active Substance: SODIUM OXYBATE
     Indication: NARCOLEPSY
     Route: 048
     Dates: start: 200612, end: 2007
  5. MODAFINIL. [Concomitant]
     Active Substance: MODAFINIL
  6. DULOXETINE [Concomitant]
     Active Substance: DULOXETINE
  7. METOPROLOL (METOPROLOL TARTRATE) [Concomitant]
     Active Substance: METOPROLOL TARTRATE
  8. ROPINIROLE (ROPINIROLE HYDROCHLORIDE) [Concomitant]
  9. HYDROCODONE/ACETAMINOPHEN (HYDROCODONE, PARACETAMOL) [Concomitant]

REACTIONS (3)
  - Cardiac failure congestive [None]
  - Coronary arterial stent insertion [None]
  - Myocardial infarction [None]

NARRATIVE: CASE EVENT DATE: 201404
